FAERS Safety Report 9805441 (Version 1)
Quarter: 2014Q1

REPORT INFORMATION
  Report Type: Spontaneous
  Country: US (occurrence: None)
  Receive Date: 20140107
  Receipt Date: 20140107
  Transmission Date: 20141002
  Serious: Yes (Hospitalization)
  Sender: FDA-Public Use
  Company Number: 2013P1022335

PATIENT
  Age: 45 Year
  Sex: Male

DRUGS (2)
  1. PREDNISONE [Suspect]
     Dosage: 7.5 MG
     Dates: start: 20070319
  2. BELATACEPT [Suspect]
     Dosage: IV
     Route: 042
     Dates: start: 20070124

REACTIONS (4)
  - Leg amputation [None]
  - Medical device complication [None]
  - Postoperative wound infection [None]
  - Immunosuppression [None]
